FAERS Safety Report 11661977 (Version 1)
Quarter: 2015Q4

REPORT INFORMATION
  Report Type: Spontaneous
  Country: US (occurrence: US)
  Receive Date: 20151026
  Receipt Date: 20151026
  Transmission Date: 20160304
  Serious: No
  Sender: FDA-Public Use
  Company Number: US-MEDA-2012060087

PATIENT
  Sex: Female

DRUGS (1)
  1. ASTEPRO [Suspect]
     Active Substance: AZELASTINE HYDROCHLORIDE
     Dates: start: 20120601

REACTIONS (3)
  - Hypersensitivity [Unknown]
  - Sneezing [Unknown]
  - Erythema [Unknown]

NARRATIVE: CASE EVENT DATE: 20120601
